FAERS Safety Report 15724122 (Version 1)
Quarter: 2018Q4

REPORT INFORMATION
  Report Type: Report from Study
  Country: FR (occurrence: FR)
  Receive Date: 20181214
  Receipt Date: 20181214
  Transmission Date: 20190205
  Serious: Yes (Other)
  Sender: FDA-Public Use
  Company Number: IND-FR-009507513-1811FRA000503

PATIENT
  Age: 3 Year
  Sex: Female

DRUGS (1)
  1. VARICELLA VIRUS VACCINE LIVE (OKA/MERCK) [Suspect]
     Active Substance: VARICELLA-ZOSTER VIRUS STRAIN OKA/MERCK LIVE ANTIGEN
     Indication: PROPHYLAXIS
     Dates: start: 20041217, end: 20041217

REACTIONS (2)
  - Vaccination failure [Unknown]
  - Varicella [Unknown]

NARRATIVE: CASE EVENT DATE: 20070307
